FAERS Safety Report 15289464 (Version 4)
Quarter: 2018Q4

REPORT INFORMATION
  Report Type: Report from Study
  Country: None (occurrence: AR)
  Receive Date: 20180817
  Receipt Date: 20181122
  Transmission Date: 20190204
  Serious: Yes (Hospitalization)
  Sender: FDA-Public Use
  Company Number: AR-ABBVIE-18K-007-2454345-00

PATIENT
  Age: 48 Year
  Sex: Female

DRUGS (1)
  1. HUMIRA [Suspect]
     Active Substance: ADALIMUMAB
     Indication: PSORIASIS
     Route: 058
     Dates: start: 20180417

REACTIONS (8)
  - Bacterial infection [Unknown]
  - Haemolysis [Unknown]
  - Food allergy [Recovering/Resolving]
  - Oropharyngeal pain [Unknown]
  - Drug hypersensitivity [Not Recovered/Not Resolved]
  - Psoriasis [Recovering/Resolving]
  - Headache [Unknown]
  - Tachycardia [Unknown]

NARRATIVE: CASE EVENT DATE: 2018
